FAERS Safety Report 4476444-9 (Version None)
Quarter: 2004Q4

REPORT INFORMATION
  Report Type: 
  Country: None (occurrence: None)
  Receive Date: 20041012
  Receipt Date: 20040927
  Transmission Date: 20050328
  Serious: Yes (Hospitalization, Other)
  Sender: FDA-Public Use
  Company Number: 178471

PATIENT
  Age: 51 Year
  Sex: Female
  Weight: 74.8435 kg

DRUGS (6)
  1. AVONEX [Suspect]
     Indication: MULTIPLE SCLEROSIS
     Dosage: 30 MCG QW IM
     Route: 030
     Dates: start: 19980101
  2. SYNTHROID [Concomitant]
  3. ANTIHYPERTENSIVE MEDICATION (NOS) [Concomitant]
  4. BACLOFEN [Concomitant]
  5. NEURONTIN [Concomitant]
  6. ZANAFLEX [Concomitant]

REACTIONS (16)
  - ATAXIA [None]
  - BREAST CANCER [None]
  - CONSTIPATION [None]
  - DISEASE PROGRESSION [None]
  - DYSPNOEA [None]
  - GAIT DISTURBANCE [None]
  - GAIT SPASTIC [None]
  - HEMIPARESIS [None]
  - HERPES ZOSTER [None]
  - MEMORY IMPAIRMENT [None]
  - MULTIPLE SCLEROSIS [None]
  - MUSCLE STRAIN [None]
  - NEUROPATHIC PAIN [None]
  - OPTIC NERVE DISORDER [None]
  - POLLAKIURIA [None]
  - WHEEZING [None]
